FAERS Safety Report 19924231 (Version 1)
Quarter: 2021Q4

REPORT INFORMATION
  Report Type: Report from Study
  Country: PK (occurrence: PK)
  Receive Date: 20211006
  Receipt Date: 20211006
  Transmission Date: 20220303
  Serious: Yes (Death, Hospitalization)
  Sender: FDA-Public Use
  Company Number: PK-NOVARTISPH-NVSC2021PK227950

PATIENT
  Sex: Male
  Weight: 44 kg

DRUGS (1)
  1. TASIGNA [Suspect]
     Active Substance: NILOTINIB
     Indication: Philadelphia positive chronic myeloid leukaemia
     Dosage: 2 DF, BID (800 MG)
     Route: 048
     Dates: start: 20201014

REACTIONS (2)
  - Philadelphia positive chronic myeloid leukaemia [Fatal]
  - Asthenia [Fatal]
